FAERS Safety Report 11317306 (Version 1)
Quarter: 2015Q3

REPORT INFORMATION
  Report Type: Spontaneous
  Country: US (occurrence: None)
  Receive Date: 20150727
  Receipt Date: 20150727
  Transmission Date: 20151125
  Serious: No
  Sender: FDA-Public Use
  Company Number: None

PATIENT
  Age: 58 Year
  Sex: Male

DRUGS (14)
  1. INSULIN GLARGINE [Suspect]
     Active Substance: INSULIN GLARGINE
     Indication: HYPERGLYCAEMIA
     Dosage: 20 UNITS
     Route: 058
     Dates: start: 20150605, end: 20150607
  2. CITALOPRAM [Concomitant]
     Active Substance: CITALOPRAM HYDROBROMIDE
  3. IPRATROPIUM [Concomitant]
     Active Substance: IPRATROPIUM
  4. TEMAZEPAM. [Concomitant]
     Active Substance: TEMAZEPAM
  5. INSULIN ASPART [Suspect]
     Active Substance: INSULIN ASPART
     Dosage: SLIDING SCALE
     Route: 058
  6. FOLIC ACID. [Concomitant]
     Active Substance: FOLIC ACID
  7. NICOTINE. [Concomitant]
     Active Substance: NICOTINE
  8. ALBUTEROL. [Concomitant]
     Active Substance: ALBUTEROL
  9. AZITHROMYCIN [Concomitant]
     Active Substance: AZITHROMYCIN ANHYDROUS
  10. THIAMINE. [Concomitant]
     Active Substance: THIAMINE
  11. CEFEPIME [Concomitant]
     Active Substance: CEFEPIME HYDROCHLORIDE
  12. IBUPROFEN. [Concomitant]
     Active Substance: IBUPROFEN
  13. ENOXAPARIN [Concomitant]
     Active Substance: ENOXAPARIN
  14. GABAPENTIN. [Concomitant]
     Active Substance: GABAPENTIN

REACTIONS (4)
  - Dyspnoea [None]
  - Blood glucose increased [None]
  - Cough [None]
  - Blood glucose decreased [None]

NARRATIVE: CASE EVENT DATE: 20150606
